FAERS Safety Report 7055405-X (Version None)
Quarter: 2010Q4

REPORT INFORMATION
  Report Type: 
  Country: None (occurrence: None)
  Receive Date: 20101021
  Receipt Date: 20101015
  Transmission Date: 20110411
  Serious: Yes (Death, Other)
  Sender: FDA-Public Use
  Company Number: PHHY2010HR69148

PATIENT
  Sex: Male

DRUGS (5)
  1. TASIGNA [Suspect]
     Indication: CHRONIC MYELOID LEUKAEMIA
     Dosage: 800 MG, DAILY
     Route: 048
     Dates: start: 20100702, end: 20100728
  2. TASIGNA [Suspect]
     Dosage: 200 MG, DAILY
     Route: 048
  3. RANITIDINE [Concomitant]
     Dosage: 300 MG, DAILY
     Route: 048
     Dates: start: 20100702, end: 20100728
  4. ACETYLSALICYLIC ACID SRT [Concomitant]
     Dosage: 100 MG, DAILY
     Route: 048
     Dates: start: 20100702, end: 20100728
  5. TAZOBACTAM [Concomitant]
     Dosage: 4.5 G, DAILY
     Route: 041
     Dates: start: 20100702, end: 20100728

REACTIONS (7)
  - CANDIDA TEST POSITIVE [None]
  - DEATH [None]
  - INFECTIOUS DISEASE CARRIER [None]
  - LUNG INFILTRATION [None]
  - PANCYTOPENIA [None]
  - PYREXIA [None]
  - SHOCK [None]
